FAERS Safety Report 4976821-3 (Version None)
Quarter: 2006Q2

REPORT INFORMATION
  Report Type: 
  Country: None (occurrence: None)
  Receive Date: 20060413
  Receipt Date: 20060404
  Transmission Date: 20061013
  Serious: Yes (Other)
  Sender: FDA-Public Use
  Company Number: 2006046860

PATIENT
  Age: 31 Year
  Sex: Female
  Weight: 87.5442 kg

DRUGS (3)
  1. BENADRYL ITCH STOPPING SPRAY (DIPHENHYDRAMINE, ZINC ACETATE) [Suspect]
     Indication: ARTHROPOD BITE
     Dosage: TOPICAL
     Route: 061
     Dates: start: 20060404, end: 20060404
  2. TOPIRAMATE [Concomitant]
  3. CLONAZEPAM [Concomitant]

REACTIONS (3)
  - CONDITION AGGRAVATED [None]
  - CONVULSION [None]
  - DOCUMENTED HYPERSENSITIVITY TO ADMINISTERED DRUG [None]
